FAERS Safety Report 9200104 (Version 2)
Quarter: 2013Q2

REPORT INFORMATION
  Report Type: Spontaneous
  Country: US (occurrence: US)
  Receive Date: 20130329
  Receipt Date: 20130408
  Transmission Date: 20140414
  Serious: Yes (Other)
  Sender: FDA-Public Use
  Company Number: US-ROCHE-1207276

PATIENT
  Age: 46 Year
  Sex: Female

DRUGS (3)
  1. PEGASYS [Suspect]
     Indication: HEPATITIS C
     Route: 065
     Dates: start: 20130310
  2. RIBAVIRIN [Suspect]
     Indication: HEPATITIS C
     Route: 065
     Dates: start: 20130310
  3. TELAPREVIR [Suspect]
     Indication: HEPATITIS C
     Route: 065
     Dates: start: 20130310

REACTIONS (12)
  - Neoplasm [Unknown]
  - Injection site bruising [Unknown]
  - Erythema [Unknown]
  - Fatigue [Unknown]
  - Dry skin [Unknown]
  - Pruritus [Unknown]
  - Asthenia [Unknown]
  - Decreased appetite [Unknown]
  - Motion sickness [Unknown]
  - Influenza like illness [Unknown]
  - Emotional disorder [Unknown]
  - Blood count abnormal [Unknown]
